FAERS Safety Report 19823751 (Version 1)
Quarter: 2021Q3

REPORT INFORMATION
  Report Type: Report from Study
  Country: None (occurrence: IT)
  Receive Date: 20210913
  Receipt Date: 20210913
  Transmission Date: 20211014
  Serious: Yes (Death)
  Sender: FDA-Public Use
  Company Number: IT-ABBVIE-21K-083-4077275-00

PATIENT
  Age: 66 Year
  Sex: Male

DRUGS (2)
  1. DUODOPA [Suspect]
     Active Substance: CARBIDOPA\LEVODOPA
  2. DUODOPA [Suspect]
     Active Substance: CARBIDOPA\LEVODOPA
     Indication: PARKINSON^S DISEASE
     Dosage: PUMP SETTING: MD: 4+3; CR: 2,5 (15H); ED: 2
     Route: 050
     Dates: start: 20170424, end: 20210722

REACTIONS (2)
  - Pemphigoid [Fatal]
  - General physical health deterioration [Fatal]

NARRATIVE: CASE EVENT DATE: 202106
